FAERS Safety Report 18194759 (Version 1)
Quarter: 2020Q3

REPORT INFORMATION
  Report Type: Spontaneous
  Country: GB (occurrence: GB)
  Receive Date: 20200825
  Receipt Date: 20200825
  Transmission Date: 20201103
  Serious: Yes (Other)
  Sender: FDA-Public Use
  Company Number: GB-MYLANLABS-2020M1072731

PATIENT
  Age: 52 Year
  Sex: Female

DRUGS (3)
  1. BENDROFLUMETHIAZIDE [Suspect]
     Active Substance: BENDROFLUMETHIAZIDE
     Indication: PRODUCT USED FOR UNKNOWN INDICATION
     Dosage: UNK
     Route: 048
     Dates: start: 2005, end: 200611
  2. ATENOLOL. [Suspect]
     Active Substance: ATENOLOL
     Indication: PRODUCT USED FOR UNKNOWN INDICATION
     Dosage: UNK
     Route: 065
     Dates: start: 2005, end: 200611
  3. NAPROXEN. [Interacting]
     Active Substance: NAPROXEN
     Indication: BACK DISORDER
     Dosage: ONE TABLET AFTER THE EVENING MEAL, THEN BREAKFAST THE FOLLOWING MORNING
     Route: 048

REACTIONS (3)
  - Blood potassium decreased [Unknown]
  - Drug interaction [Unknown]
  - Myocardial infarction [Unknown]

NARRATIVE: CASE EVENT DATE: 200611
